FAERS Safety Report 4839472-7 (Version None)
Quarter: 2005Q4

REPORT INFORMATION
  Report Type: 
  Country: None (occurrence: None)
  Receive Date: 20051129
  Receipt Date: 20051123
  Transmission Date: 20060501
  Serious: Yes (Other)
  Sender: FDA-Public Use
  Company Number: US-GLAXOSMITHKLINE-A0583340A

PATIENT
  Age: 63 Year
  Sex: Female

DRUGS (1)
  1. ECOTRIN ADULT LOW STRENGTH TABLETS [Suspect]
     Route: 048
     Dates: start: 20050101, end: 20051101

REACTIONS (4)
  - ASTHENIA [None]
  - COLITIS [None]
  - RECTAL DISCHARGE [None]
  - RECTAL HAEMORRHAGE [None]
